FAERS Safety Report 8217817-8 (Version None)
Quarter: 2012Q1

REPORT INFORMATION
  Report Type: 
  Country: None (occurrence: None)
  Receive Date: 20120319
  Receipt Date: 20120308
  Transmission Date: 20120608
  Serious: Yes (Other)
  Sender: FDA-Public Use
  Company Number: CA-JNJFOC-20120304629

PATIENT
  Sex: Female
  Weight: 66.68 kg

DRUGS (1)
  1. REMICADE [Suspect]
     Indication: RHEUMATOID ARTHRITIS
     Route: 042
     Dates: start: 20080101, end: 20110501

REACTIONS (3)
  - BREAST CANCER [None]
  - LYMPHOEDEMA [None]
  - IMMUNOSUPPRESSION [None]
